FAERS Safety Report 12949948 (Version 1)
Quarter: 2016Q4

REPORT INFORMATION
  Report Type: Spontaneous
  Country: US (occurrence: US)
  Receive Date: 20161116
  Receipt Date: 20161116
  Transmission Date: 20170207
  Serious: Yes (Disabling)
  Sender: FDA-Public Use
  Company Number: None

PATIENT
  Age: 41 Year
  Sex: Female
  Weight: 117 kg

DRUGS (26)
  1. VITAMIN E [Suspect]
     Active Substance: .ALPHA.-TOCOPHEROL
  2. PROVIGIL [Concomitant]
     Active Substance: MODAFINIL
  3. OXYCONTIN [Concomitant]
     Active Substance: OXYCODONE HYDROCHLORIDE
  4. COQ10 [Concomitant]
     Active Substance: UBIDECARENONE
  5. VIIBRYD [Concomitant]
     Active Substance: VILAZODONE HYDROCHLORIDE
  6. ZEBETA [Concomitant]
     Active Substance: BISOPROLOL FUMARATE
  7. DAILY VITAMIN [Concomitant]
     Active Substance: VITAMINS
  8. FISH OIL [Concomitant]
     Active Substance: FISH OIL
  9. CALCIUM [Concomitant]
     Active Substance: CALCIUM
  10. VITAMIN D3 [Concomitant]
     Active Substance: CHOLECALCIFEROL
  11. REQUIP [Concomitant]
     Active Substance: ROPINIROLE HYDROCHLORIDE
  12. SINGULAIR [Concomitant]
     Active Substance: MONTELUKAST SODIUM
  13. IRON [Concomitant]
     Active Substance: IRON
  14. SYNTHROID [Concomitant]
     Active Substance: LEVOTHYROXINE SODIUM
  15. TRAZODONE [Concomitant]
     Active Substance: TRAZODONE HYDROCHLORIDE
  16. PRISTIQ EXTENDED-RELEASE [Concomitant]
     Active Substance: DESVENLAFAXINE SUCCINATE
  17. MINOCYCLINE [Concomitant]
     Active Substance: MINOCYCLINE\MINOCYCLINE HYDROCHLORIDE
  18. DEPLIN [Concomitant]
     Active Substance: LEVOMEFOLATE CALCIUM
  19. MAGNESIUM [Concomitant]
     Active Substance: MAGNESIUM
  20. LATUDA [Suspect]
     Active Substance: LURASIDONE HYDROCHLORIDE
     Indication: DEPRESSION
     Dosage: ?          QUANTITY:1 TABLET(S);?
     Route: 048
     Dates: start: 20160116, end: 20160130
  21. FLEXERIL [Concomitant]
     Active Substance: CYCLOBENZAPRINE HYDROCHLORIDE
  22. HYDROXYZINE [Concomitant]
     Active Substance: HYDROXYZINE\HYDROXYZINE HYDROCHLORIDE
  23. TRICOR [Concomitant]
     Active Substance: FENOFIBRATE
  24. RITALIN [Concomitant]
     Active Substance: METHYLPHENIDATE HYDROCHLORIDE
  25. ZYRTEC [Concomitant]
     Active Substance: CETIRIZINE HYDROCHLORIDE
  26. ZANTAC [Concomitant]
     Active Substance: RANITIDINE HYDROCHLORIDE

REACTIONS (18)
  - Hypersensitivity [None]
  - Obsessive-compulsive disorder [None]
  - Dysphagia [None]
  - Tongue movement disturbance [None]
  - Pruritus [None]
  - Nausea [None]
  - Restlessness [None]
  - Speech disorder [None]
  - Agitation [None]
  - Condition aggravated [None]
  - Stomatitis [None]
  - Tardive dyskinesia [None]
  - Dysarthria [None]
  - Anxiety [None]
  - Tic [None]
  - Decreased appetite [None]
  - Irritability [None]
  - Salivary hypersecretion [None]

NARRATIVE: CASE EVENT DATE: 20160125
